FAERS Safety Report 5995372-0 (Version None)
Quarter: 2008Q4

REPORT INFORMATION
  Report Type: 
  Country: None (occurrence: None)
  Receive Date: 20081210
  Receipt Date: 20081205
  Transmission Date: 20090506
  Serious: Yes (Hospitalization, Other)
  Sender: FDA-Public Use
  Company Number: 2007SP017031

PATIENT
  Age: 8 Year
  Sex: Male
  Weight: 20 kg

DRUGS (21)
  1. TEMODAL [Suspect]
     Indication: MEDULLOBLASTOMA RECURRENT
     Dosage: 200 MG/M2; QD; PO
     Route: 048
     Dates: start: 20070113, end: 20070117
  2. TEMODAL [Suspect]
     Indication: MEDULLOBLASTOMA RECURRENT
     Dosage: 200 MG/M2; QD; PO
     Route: 048
     Dates: start: 20070215, end: 20070219
  3. TEMODAL [Suspect]
     Indication: MEDULLOBLASTOMA RECURRENT
     Dosage: 200 MG/M2; QD; PO
     Route: 048
     Dates: start: 20070320, end: 20070324
  4. TEMODAL [Suspect]
     Indication: MEDULLOBLASTOMA RECURRENT
     Dosage: 200 MG/M2; QD; PO
     Route: 048
     Dates: start: 20070424, end: 20070428
  5. TEMODAL [Suspect]
     Indication: MEDULLOBLASTOMA RECURRENT
     Dosage: 200 MG/M2; QD; PO
     Route: 048
     Dates: start: 20070529, end: 20070602
  6. ETOPOSIDE [Suspect]
     Indication: MEDULLOBLASTOMA RECURRENT
     Dosage: PO
     Route: 048
     Dates: start: 20070113
  7. BAKTAR [Concomitant]
  8. SELENICA-R [Concomitant]
  9. MUCODYNE [Concomitant]
  10. SINGULAIR [Concomitant]
  11. ZOFRAN ZYDIS [Concomitant]
  12. NAUZELIN [Concomitant]
  13. DIFLUCAN [Concomitant]
  14. CRAVIT [Concomitant]
  15. METHOTREXATE [Concomitant]
  16. DECADRON [Concomitant]
  17. ITRIZOLE [Concomitant]
  18. CRAVIT [Concomitant]
  19. URSO 250 [Concomitant]
  20. FIRSTCIN [Concomitant]
  21. MONILAC [Concomitant]

REACTIONS (4)
  - HYPOGAMMAGLOBULINAEMIA [None]
  - LYMPHOCYTE COUNT DECREASED [None]
  - NEUTROPHIL COUNT DECREASED [None]
  - WHITE BLOOD CELL COUNT DECREASED [None]
